FAERS Safety Report 6139875-7 (Version None)
Quarter: 2009Q1

REPORT INFORMATION
  Report Type: 
  Country: None (occurrence: None)
  Receive Date: 20090331
  Receipt Date: 20090331
  Transmission Date: 20090719
  Serious: No
  Sender: FDA-Public Use
  Company Number: None

PATIENT
  Sex: Female
  Weight: 84.55 kg

DRUGS (5)
  1. SIMVASTATIN [Suspect]
     Dosage: 20MG TABLET 20 MG QHS
     Route: 048
     Dates: start: 20090205, end: 20090327
  2. ACCUPRIL [Concomitant]
  3. CETIRIZINE [Concomitant]
  4. MOTRIN [Concomitant]
  5. OMEPRAZOLE [Concomitant]

REACTIONS (1)
  - HEPATITIS [None]
